FAERS Safety Report 25636954 (Version 1)
Quarter: 2025Q3

REPORT INFORMATION
  Report Type: Report from Study
  Country: EU (occurrence: EU)
  Receive Date: 20250804
  Receipt Date: 20250804
  Transmission Date: 20251020
  Serious: Yes (Other)
  Sender: ACCORD
  Company Number: None

PATIENT
  Age: 75 Year
  Sex: Female

DRUGS (3)
  1. PACLITAXEL [Suspect]
     Active Substance: PACLITAXEL
     Indication: Breast cancer
     Dates: start: 20250515, end: 20250515
  2. CARBOPLATIN [Suspect]
     Active Substance: CARBOPLATIN
     Indication: Breast cancer
     Dates: start: 20250515, end: 20250515
  3. TRASTUZUMAB [Concomitant]
     Active Substance: TRASTUZUMAB

REACTIONS (4)
  - Dyspnoea [Recovering/Resolving]
  - Mitral valve incompetence [Recovering/Resolving]
  - Tricuspid valve incompetence [Recovering/Resolving]
  - Off label use [Not Recovered/Not Resolved]

NARRATIVE: CASE EVENT DATE: 20250515
